FAERS Safety Report 7572939-X (Version None)
Quarter: 2011Q2

REPORT INFORMATION
  Report Type: 
  Country: None (occurrence: None)
  Receive Date: 20110627
  Receipt Date: 20110614
  Transmission Date: 20111010
  Serious: Yes (Hospitalization)
  Sender: FDA-Public Use
  Company Number: US-JNJFOC-20110608068

PATIENT
  Sex: Male
  Weight: 90.72 kg

DRUGS (7)
  1. OXYCODONE HCL [Concomitant]
     Indication: NECK PAIN
     Route: 065
  2. TYLENOL-500 [Concomitant]
     Indication: NECK PAIN
     Route: 065
  3. ZYTIGA [Suspect]
     Indication: PROSTATE CANCER
     Route: 048
     Dates: start: 20110401
  4. PERCOCET [Concomitant]
     Indication: NECK PAIN
     Route: 065
  5. PERCOCET [Concomitant]
     Indication: BACK PAIN
     Route: 065
  6. TYLENOL-500 [Concomitant]
     Indication: BACK PAIN
     Route: 065
  7. OXYCODONE HCL [Concomitant]
     Indication: BACK PAIN
     Route: 065

REACTIONS (10)
  - DEPRESSION [None]
  - PYREXIA [None]
  - CHILLS [None]
  - FALL [None]
  - CHRONIC OBSTRUCTIVE PULMONARY DISEASE [None]
  - FATIGUE [None]
  - BACK PAIN [None]
  - NECK PAIN [None]
  - STRESS [None]
  - INADEQUATE DIET [None]
